FAERS Safety Report 8599578-6 (Version None)
Quarter: 2012Q3

REPORT INFORMATION
  Report Type: 
  Country: None (occurrence: None)
  Receive Date: 20120816
  Receipt Date: 20120807
  Transmission Date: 20120928
  Serious: Yes (Hospitalization)
  Sender: FDA-Public Use
  Company Number: US-ACTELION-A-US2011-57113

PATIENT
  Age: 55 Year
  Sex: Female

DRUGS (2)
  1. TRACLEER [Suspect]
     Indication: PULMONARY ARTERIAL HYPERTENSION
     Dosage: UNK
     Route: 048
     Dates: start: 20111107
  2. REVATIO [Concomitant]

REACTIONS (5)
  - BLOOD POTASSIUM DECREASED [None]
  - RESPIRATORY ARREST [None]
  - WEIGHT INCREASED [None]
  - OEDEMA [None]
  - LOSS OF CONSCIOUSNESS [None]
